FAERS Safety Report 5706989-2 (Version None)
Quarter: 2008Q2

REPORT INFORMATION
  Report Type: 
  Country: None (occurrence: None)
  Receive Date: 20080416
  Receipt Date: 20080416
  Transmission Date: 20081010
  Serious: Yes (Other)
  Sender: FDA-Public Use
  Company Number: A0723157A

PATIENT
  Sex: Female

DRUGS (1)
  1. ALLI [Suspect]
     Indication: WEIGHT LOSS DIET
     Route: 048

REACTIONS (14)
  - ADVERSE EVENT [None]
  - ANXIETY [None]
  - CHILLS [None]
  - DIARRHOEA [None]
  - DRUG INEFFECTIVE [None]
  - DYSKINESIA [None]
  - FALL [None]
  - GAIT DISTURBANCE [None]
  - GASTROENTERITIS VIRAL [None]
  - GASTROINTESTINAL DISORDER [None]
  - INFLUENZA [None]
  - LOSS OF CONSCIOUSNESS [None]
  - PAIN [None]
  - PALLOR [None]
